FAERS Safety Report 8231655-1 (Version None)
Quarter: 2012Q1

REPORT INFORMATION
  Report Type: 
  Country: None (occurrence: None)
  Receive Date: 20120323
  Receipt Date: 20120315
  Transmission Date: 20120608
  Serious: Yes (Other)
  Sender: FDA-Public Use
  Company Number: DE-PFIZER INC-2012009693

PATIENT
  Sex: Female

DRUGS (1)
  1. RAMIPRIL [Suspect]
     Indication: BLOOD PRESSURE INCREASED
     Dosage: 10 MG, UNK
     Route: 048

REACTIONS (29)
  - VISION BLURRED [None]
  - SLEEP DISORDER [None]
  - FEELING COLD [None]
  - COUGH [None]
  - MUSCLE SPASMS [None]
  - DRY MOUTH [None]
  - HAEMORRHAGE [None]
  - BRONCHITIS [None]
  - CHEST DISCOMFORT [None]
  - PARAESTHESIA [None]
  - HYPERHIDROSIS [None]
  - SKIN EXFOLIATION [None]
  - SKIN DISCOLOURATION [None]
  - ASTHMA [None]
  - ABDOMINAL PAIN [None]
  - WEIGHT INCREASED [None]
  - ASTHENIA [None]
  - NASAL CONGESTION [None]
  - HEADACHE [None]
  - SINUSITIS [None]
  - BINGE EATING [None]
  - BALANCE DISORDER [None]
  - DYSPNOEA [None]
  - RASH ERYTHEMATOUS [None]
  - DIARRHOEA [None]
  - OEDEMA PERIPHERAL [None]
  - CHEST PAIN [None]
  - CHILLS [None]
  - DRUG INTOLERANCE [None]
